FAERS Safety Report 9461703 (Version 1)
Quarter: 2013Q3

REPORT INFORMATION
  Report Type: Spontaneous
  Country: US (occurrence: None)
  Receive Date: 20130815
  Receipt Date: 20130815
  Transmission Date: 20140515
  Serious: Yes (Disabling, Other)
  Sender: FDA-Public Use
  Company Number: None

PATIENT
  Age: 1 Month
  Sex: Male

DRUGS (2)
  1. HYLANDS TEETHING TABLETS [Suspect]
     Indication: TEETHING
     Dates: start: 20100428
  2. GUMMIE VITAMINS [Concomitant]

REACTIONS (9)
  - Pyrexia [None]
  - Constipation [None]
  - Agitation [None]
  - Skin disorder [None]
  - Sinus disorder [None]
  - Speech disorder developmental [None]
  - Visual impairment [None]
  - Micturition disorder [None]
  - Respiratory disorder [None]
